FAERS Safety Report 6693013-0 (Version None)
Quarter: 2010Q2

REPORT INFORMATION
  Report Type: 
  Country: None (occurrence: None)
  Receive Date: 20100419
  Receipt Date: 20100408
  Transmission Date: 20101027
  Serious: Yes (Congenital Anomaly)
  Sender: FDA-Public Use
  Company Number: 1000012846

PATIENT
  Weight: 3.75 kg

DRUGS (3)
  1. CARBAMAZEPINE [Suspect]
     Dosage: 600 MG (600 MG, 1 IN 1 D), TRANSPLACENTAL 500 MG (500 MG,1 IN 1 D), TRANSPLACENTAL
     Route: 064
  2. AMOXICILLIN [Concomitant]
  3. NITROFURANTOIN [Concomitant]

REACTIONS (3)
  - CLEFT LIP [None]
  - CLEFT PALATE [None]
  - MATERNAL DRUGS AFFECTING FOETUS [None]
